FAERS Safety Report 22763120 (Version 3)
Quarter: 2024Q3

REPORT INFORMATION
  Report Type: Spontaneous
  Country: PT (occurrence: PT)
  Receive Date: 20230729
  Receipt Date: 20240827
  Transmission Date: 20241016
  Serious: Yes (Hospitalization, Other)
  Sender: ACCORD
  Company Number: PT-Accord-369554

PATIENT
  Age: 60 Year
  Sex: Female

DRUGS (2)
  1. MYCOPHENOLATE MOFETIL [Suspect]
     Active Substance: MYCOPHENOLATE MOFETIL
     Indication: Immunosuppression
  2. PREDNISOLONE [Suspect]
     Active Substance: PREDNISOLONE
     Indication: Immunosuppression

REACTIONS (6)
  - Pancytopenia [Recovered/Resolved]
  - Pyelonephritis acute [Recovered/Resolved]
  - Endocarditis [Recovered/Resolved]
  - Mycobacterial infection [Recovered/Resolved]
  - Staphylococcal bacteraemia [Recovered/Resolved]
  - Toxicity to various agents [Unknown]
